FAERS Safety Report 22056405 (Version 5)
Quarter: 2023Q2

REPORT INFORMATION
  Report Type: Spontaneous
  Country: US (occurrence: US)
  Receive Date: 20230302
  Receipt Date: 20230412
  Transmission Date: 20230721
  Serious: No
  Sender: FDA-Public Use
  Company Number: US-UNITED THERAPEUTICS-UNT-2023-005020

PATIENT
  Age: 58 Year
  Sex: Male
  Weight: 85.714 kg

DRUGS (15)
  1. TYVASO DPI [Suspect]
     Active Substance: TREPROSTINIL
     Indication: Pulmonary arterial hypertension
     Dosage: 16 ?G, QID
     Dates: start: 202302
  2. TYVASO DPI [Suspect]
     Active Substance: TREPROSTINIL
     Dosage: 32 ?G, QID
     Dates: start: 202302
  3. TYVASO DPI [Suspect]
     Active Substance: TREPROSTINIL
     Dosage: 48 ?G, QID
     Dates: start: 20230309, end: 202303
  4. TYVASO DPI [Suspect]
     Active Substance: TREPROSTINIL
     Dosage: 32 ?G
     Dates: start: 202303
  5. TYVASO DPI [Suspect]
     Active Substance: TREPROSTINIL
     Dosage: 48 ?G, QID
  6. TYVASO DPI [Suspect]
     Active Substance: TREPROSTINIL
     Dosage: 64 ?G
  7. TYVASO DPI [Suspect]
     Active Substance: TREPROSTINIL
     Dosage: UNK
     Dates: start: 20230206
  8. TYVASO DPI [Suspect]
     Active Substance: TREPROSTINIL
     Indication: Pulmonary arterial hypertension
     Dosage: UNK
  9. TYVASO DPI [Suspect]
     Active Substance: TREPROSTINIL
     Dosage: UNK
  10. TYVASO DPI [Suspect]
     Active Substance: TREPROSTINIL
     Indication: Pulmonary arterial hypertension
     Dosage: UNK
  11. TYVASO DPI [Suspect]
     Active Substance: TREPROSTINIL
     Dosage: UNK
  12. TYVASO DPI [Suspect]
     Active Substance: TREPROSTINIL
     Indication: Pulmonary arterial hypertension
     Dosage: UNK
  13. TYVASO DPI [Suspect]
     Active Substance: TREPROSTINIL
     Dosage: UNK
  14. OPSUMIT [Concomitant]
     Active Substance: MACITENTAN
     Indication: Product used for unknown indication
     Dosage: UNK
     Route: 065
  15. TADALAFIL [Concomitant]
     Active Substance: TADALAFIL
     Indication: Product used for unknown indication
     Dosage: UNK
     Route: 065

REACTIONS (12)
  - Respiratory tract congestion [Unknown]
  - Blood pressure fluctuation [Unknown]
  - Weight increased [Unknown]
  - Pollakiuria [Unknown]
  - Oxygen saturation decreased [Unknown]
  - Wheezing [Unknown]
  - Pulmonary pain [Unknown]
  - Cough [Unknown]
  - Presyncope [Recovered/Resolved]
  - Dyspnoea [Unknown]
  - Asthma [Unknown]
  - Headache [Unknown]

NARRATIVE: CASE EVENT DATE: 20230201
